FAERS Safety Report 8265344-4 (Version None)
Quarter: 2012Q2

REPORT INFORMATION
  Report Type: 
  Country: None (occurrence: None)
  Receive Date: 20120406
  Receipt Date: 20120329
  Transmission Date: 20120825
  Serious: Yes (Death, Other)
  Sender: FDA-Public Use
  Company Number: US-SANOFI-AVENTIS-2012SA019933

PATIENT
  Weight: 65 kg

DRUGS (2)
  1. ELOXATIN [Suspect]
     Route: 033
     Dates: start: 20111213, end: 20111213
  2. ELOXATIN [Suspect]
     Route: 033
     Dates: start: 20111213, end: 20111213

REACTIONS (4)
  - BRAIN HERNIATION [None]
  - OFF LABEL USE [None]
  - BRAIN OEDEMA [None]
  - HYPONATRAEMIA [None]
